FAERS Safety Report 18233479 (Version 9)
Quarter: 2022Q1

REPORT INFORMATION
  Report Type: Spontaneous
  Country: IN (occurrence: IN)
  Receive Date: 20200904
  Receipt Date: 20220201
  Transmission Date: 20220423
  Serious: Yes (Other)
  Sender: FDA-Public Use
  Company Number: IN-PFIZER INC-2019523392

PATIENT
  Age: 63 Year
  Sex: Female

DRUGS (5)
  1. CRIZOTINIB [Suspect]
     Active Substance: CRIZOTINIB
     Indication: ALK gene rearrangement positive
     Dosage: 250 MG, 1X/DAY
     Route: 048
     Dates: start: 20191029
  2. CRIZOTINIB [Suspect]
     Active Substance: CRIZOTINIB
     Indication: Non-small cell lung cancer
     Dosage: 250 MG, 2X/DAY
     Route: 048
     Dates: start: 20191126
  3. CRIZOTINIB [Suspect]
     Active Substance: CRIZOTINIB
     Dosage: 250 MG, BD/OD ALTERNATE DAY
  4. CRIZOTINIB [Suspect]
     Active Substance: CRIZOTINIB
     Dosage: UNK
     Route: 048
     Dates: start: 2019
  5. PALBOCICLIB [Suspect]
     Active Substance: PALBOCICLIB
     Indication: Breast cancer metastatic
     Dosage: 125 MG, 1X/DAY
     Route: 048
     Dates: start: 20191127

REACTIONS (42)
  - Hypothyroidism [Unknown]
  - Interstitial lung disease [Unknown]
  - Blood potassium increased [Unknown]
  - Neoplasm progression [Unknown]
  - Alanine aminotransferase increased [Unknown]
  - Blood albumin decreased [Unknown]
  - Albumin globulin ratio decreased [Unknown]
  - Blood urea increased [Unknown]
  - Blood creatinine increased [Unknown]
  - Blood calcium decreased [Unknown]
  - Blood phosphorus increased [Unknown]
  - Blood chloride increased [Unknown]
  - Haemoglobin decreased [Unknown]
  - Mean cell haemoglobin concentration decreased [Unknown]
  - Red cell distribution width increased [Unknown]
  - Monocyte count decreased [Unknown]
  - Platelet count decreased [Unknown]
  - Mean platelet volume increased [Unknown]
  - Thyroxine decreased [Unknown]
  - Blood thyroid stimulating hormone increased [Unknown]
  - High density lipoprotein decreased [Unknown]
  - Blood alkaline phosphatase increased [Unknown]
  - Nodule [Unknown]
  - Pleural thickening [Unknown]
  - Hepatic lesion [Unknown]
  - Atelectasis [Unknown]
  - Lung opacity [Unknown]
  - Hepatic calcification [Unknown]
  - Maculopathy [Unknown]
  - Blood thyroid stimulating hormone decreased [Unknown]
  - Blood uric acid increased [Unknown]
  - Blood glucose increased [Unknown]
  - Glycosylated haemoglobin increased [Unknown]
  - Haematocrit decreased [Unknown]
  - Mean cell haemoglobin increased [Unknown]
  - Mean cell haemoglobin concentration increased [Unknown]
  - Aspartate aminotransferase increased [Unknown]
  - Pleural effusion [Unknown]
  - Cardiomegaly [Unknown]
  - Hepatic cyst [Unknown]
  - Nausea [Unknown]
  - Off label use [Unknown]

NARRATIVE: CASE EVENT DATE: 20200822
